FAERS Safety Report 9896555 (Version 2)
Quarter: 2014Q1

REPORT INFORMATION
  Report Type: Spontaneous
  Country: US (occurrence: US)
  Receive Date: 20140213
  Receipt Date: 20140213
  Transmission Date: 20141002
  Serious: No
  Sender: FDA-Public Use
  Company Number: US-BRISTOL-MYERS SQUIBB COMPANY-18868232

PATIENT
  Age: 46 Year
  Sex: Female
  Weight: 72.11 kg

DRUGS (1)
  1. ORENCIA [Suspect]
     Indication: RHEUMATOID ARTHRITIS
     Dosage: DATE OF LAST INFUSION:  01MAY2013
     Route: 042

REACTIONS (1)
  - Vaginal haemorrhage [Recovered/Resolved]
